FAERS Safety Report 9850135 (Version 3)
Quarter: 2014Q1

REPORT INFORMATION
  Report Type: Spontaneous
  Country: JP (occurrence: JP)
  Receive Date: 20140128
  Receipt Date: 20140227
  Transmission Date: 20141002
  Serious: Yes (Death, Hospitalization, Other)
  Sender: FDA-Public Use
  Company Number: JP-PFIZER INC-2014022572

PATIENT
  Age: 66 Year
  Sex: Male
  Weight: 48 kg

DRUGS (21)
  1. IRINOTECAN HCL [Suspect]
     Indication: COLORECTAL CANCER
     Dosage: 266.8 MG, 1X/DAY
     Route: 041
     Dates: start: 20130426, end: 20130426
  2. IRINOTECAN HCL [Suspect]
     Dosage: 222.3 MG, 1X/DAY
     Route: 041
     Dates: start: 20130520, end: 20130520
  3. IRINOTECAN HCL [Suspect]
     Dosage: 222.3 MG, 1X/DAY
     Route: 041
     Dates: start: 20130607, end: 20130607
  4. 5-FU [Suspect]
     Indication: COLON CANCER
     Dosage: 592.8 MG, 1X/DAY
     Route: 040
     Dates: start: 20130426, end: 20130426
  5. 5-FU [Suspect]
     Dosage: 3556.8 MG, 1X/DAY
     Route: 041
     Dates: start: 20130426, end: 20130426
  6. 5-FU [Suspect]
     Dosage: 592.8 MG, 1X/DAY
     Route: 040
     Dates: start: 20130520, end: 20130520
  7. 5-FU [Suspect]
     Dosage: 3556.8 MG, 1X/DAY
     Route: 041
     Dates: start: 20130520, end: 20130520
  8. 5-FU [Suspect]
     Dosage: 592.8 MG, 1X/DAY
     Route: 040
     Dates: start: 20130607, end: 20130607
  9. 5-FU [Suspect]
     Dosage: 3556.8 MG, 1X/DAY
     Route: 041
     Dates: start: 20130607, end: 20130607
  10. CALCIUM LEVOFOLINATE [Concomitant]
     Indication: COLON CANCER
     Dosage: UNK
     Dates: start: 20130426, end: 20130607
  11. AVE0005 [Concomitant]
     Dosage: UNK
     Dates: start: 20130426, end: 20130607
  12. LOXOPROFEN [Concomitant]
     Dosage: UNK
     Dates: end: 20130613
  13. MYSLEE [Concomitant]
     Dosage: UNK
     Dates: end: 20130613
  14. AZUNOL GARGLE LIQUID [Concomitant]
     Dosage: UNK
     Dates: start: 20130517, end: 20130613
  15. ELENTAL [Concomitant]
     Dosage: UNK
     Dates: start: 20130517, end: 20130613
  16. RINDERON [Concomitant]
     Dosage: UNK
     Dates: start: 20130520, end: 20130613
  17. BERIZYM [Concomitant]
     Dosage: UNK
     Dates: start: 20130607, end: 20130613
  18. GASMOTIN [Concomitant]
     Dosage: UNK
     Dates: start: 20130607, end: 20130613
  19. XYLOCAINE [Concomitant]
     Dosage: UNK
     Dates: start: 20130614
  20. NOZLEN [Concomitant]
     Dosage: UNK
     Dates: start: 20130614
  21. LASIX [Concomitant]
     Dosage: UNK
     Dates: start: 20130627

REACTIONS (13)
  - Disease progression [Fatal]
  - Colon cancer [Fatal]
  - Decreased appetite [Not Recovered/Not Resolved]
  - Stomatitis [Recovering/Resolving]
  - Neutropenia [Unknown]
  - Hyperhidrosis [Unknown]
  - Chills [Unknown]
  - General physical health deterioration [Unknown]
  - Diarrhoea [Unknown]
  - Dysgeusia [Unknown]
  - Oedema peripheral [Unknown]
  - Weight decreased [Unknown]
  - Hepatic function abnormal [Unknown]
